FAERS Safety Report 12914805 (Version 1)
Quarter: 2016Q4

REPORT INFORMATION
  Report Type: Spontaneous
  Country: US (occurrence: US)
  Receive Date: 20161106
  Receipt Date: 20161106
  Transmission Date: 20170207
  Serious: No
  Sender: FDA-Public Use
  Company Number: US-RELYPSA-RLY2016002079

PATIENT
  Sex: Male

DRUGS (13)
  1. CALCIUM ACETATE. [Concomitant]
     Active Substance: CALCIUM ACETATE
  2. LASIX [Concomitant]
     Active Substance: FUROSEMIDE
  3. LOVASTATIN. [Concomitant]
     Active Substance: LOVASTATIN
  4. DOXAZOSIN [Concomitant]
     Active Substance: DOXAZOSIN\DOXAZOSIN MESYLATE
  5. METOPROLOL. [Concomitant]
     Active Substance: METOPROLOL
  6. NEXIUM [Concomitant]
     Active Substance: ESOMEPRAZOLE MAGNESIUM
  7. NIFEDIPINE. [Concomitant]
     Active Substance: NIFEDIPINE
  8. CALCITRIOL. [Concomitant]
     Active Substance: CALCITRIOL
  9. VELTASSA [Suspect]
     Active Substance: PATIROMER
     Indication: HYPERKALAEMIA
     Dosage: 8.4 G, QD
     Route: 048
     Dates: start: 20160706
  10. SODIUM BICARBONATE. [Concomitant]
     Active Substance: SODIUM BICARBONATE
  11. BENADRYL [Concomitant]
     Active Substance: DIPHENHYDRAMINE HYDROCHLORIDE
  12. DRISDOL [Concomitant]
     Active Substance: ERGOCALCIFEROL
  13. METOLAZONE. [Concomitant]
     Active Substance: METOLAZONE

REACTIONS (2)
  - Defaecation urgency [Unknown]
  - Anal incontinence [Unknown]
